FAERS Safety Report 23128152 (Version 2)
Quarter: 2023Q4

REPORT INFORMATION
  Report Type: Spontaneous
  Country: ZA (occurrence: ZA)
  Receive Date: 20231031
  Receipt Date: 20231121
  Transmission Date: 20240109
  Serious: Yes (Hospitalization)
  Sender: FDA-Public Use
  Company Number: ZA-LUPIN PHARMACEUTICALS INC.-2023-09532

PATIENT

DRUGS (9)
  1. AMLODIPINE BESYLATE [Suspect]
     Active Substance: AMLODIPINE BESYLATE
     Indication: Hypertension
     Dosage: 10 MG
     Route: 048
  2. BISOPROLOL FUMARATE [Suspect]
     Active Substance: BISOPROLOL FUMARATE
     Indication: Hypertension
     Dosage: 10 MG
     Route: 048
  3. GLICLAZIDE [Suspect]
     Active Substance: GLICLAZIDE
     Indication: Diabetes mellitus
     Dosage: 60 MG
     Route: 048
  4. ESOMEPRAZOLE [Suspect]
     Active Substance: ESOMEPRAZOLE
     Indication: Ulcer
     Dosage: 20 MG
     Route: 048
  5. ASPIRIN\CLOPIDOGREL BISULFATE [Suspect]
     Active Substance: ASPIRIN\CLOPIDOGREL BISULFATE
     Indication: Anticoagulant therapy
     Dosage: UNK, 75/75 MG
     Route: 048
  6. ATORVASTATIN [Suspect]
     Active Substance: ATORVASTATIN
     Indication: Blood cholesterol abnormal
     Dosage: 40 MG
     Route: 048
  7. PERINDOPRIL [Suspect]
     Active Substance: PERINDOPRIL
     Indication: Hypertension
     Dosage: 10 MG
     Route: 048
  8. METFORMIN HYDROCHLORIDE [Suspect]
     Active Substance: METFORMIN HYDROCHLORIDE
     Indication: Diabetes mellitus
     Dosage: 1000 MG
     Route: 048
  9. SPIRONOLACTONE [Suspect]
     Active Substance: SPIRONOLACTONE
     Indication: Hypertension
     Dosage: 25 MG
     Route: 048

REACTIONS (3)
  - Cardiac disorder [Unknown]
  - Renal disorder [Unknown]
  - Liver disorder [Unknown]

NARRATIVE: CASE EVENT DATE: 20231015
